FAERS Safety Report 21563632 (Version 1)
Quarter: 2022Q4

REPORT INFORMATION
  Report Type: Spontaneous
  Country: US (occurrence: US)
  Receive Date: 20221108
  Receipt Date: 20221108
  Transmission Date: 20230113
  Serious: No
  Sender: FDA-Public Use
  Company Number: US-JNJFOC-20221052053

PATIENT
  Sex: Female

DRUGS (4)
  1. BALVERSA [Suspect]
     Active Substance: ERDAFITINIB
     Indication: Product used for unknown indication
     Route: 048
  2. BALVERSA [Suspect]
     Active Substance: ERDAFITINIB
     Route: 048
  3. BALVERSA [Suspect]
     Active Substance: ERDAFITINIB
     Route: 048
  4. BALVERSA [Suspect]
     Active Substance: ERDAFITINIB
     Route: 048

REACTIONS (8)
  - Skin exfoliation [Unknown]
  - Asthenia [Unknown]
  - Onychoclasis [Unknown]
  - Paraesthesia oral [Unknown]
  - Blister [Unknown]
  - Temperature intolerance [Unknown]
  - Pain in extremity [Unknown]
  - Gait inability [Unknown]
